FAERS Safety Report 5285319-7 (Version None)
Quarter: 2007Q2

REPORT INFORMATION
  Report Type: 
  Country: None (occurrence: None)
  Receive Date: 20070403
  Receipt Date: 20070328
  Transmission Date: 20071010
  Serious: Yes (Hospitalization, Other)
  Sender: FDA-Public Use
  Company Number: GB-PFIZER INC-2007023608

PATIENT
  Age: 43 Year
  Sex: Male

DRUGS (13)
  1. ADRIAMYCIN PFS [Suspect]
     Indication: BURKITT'S LYMPHOMA
     Route: 042
     Dates: start: 19980401, end: 19980901
  2. CYCLOPHOSPHAMIDE [Suspect]
     Indication: BURKITT'S LYMPHOMA
     Route: 042
     Dates: start: 19980401, end: 19980901
  3. CYTARABINE [Suspect]
     Indication: BURKITT'S LYMPHOMA
     Route: 037
     Dates: start: 19980401, end: 19980901
  4. HYDROCORTISONE SODIUM SUCCINATE [Suspect]
     Indication: BURKITT'S LYMPHOMA
     Route: 037
     Dates: start: 19980401, end: 19980901
  5. METHOTREXATE [Suspect]
     Indication: BURKITT'S LYMPHOMA
     Route: 037
     Dates: start: 19980401, end: 19980901
  6. PREDNISOLONE [Suspect]
     Indication: BURKITT'S LYMPHOMA
     Route: 048
     Dates: start: 19980401, end: 19980901
  7. TRIMETHOPRIM [Suspect]
     Indication: PNEUMOCYSTIS JIROVECI INFECTION
     Route: 048
     Dates: start: 19961001
  8. SULFAMETHOXAZOLE [Suspect]
     Indication: PNEUMOCYSTIS JIROVECI INFECTION
  9. RITONAVIR [Concomitant]
     Route: 048
  10. SAQUINAVIR [Concomitant]
     Route: 048
  11. VINCRISTINE [Concomitant]
     Route: 042
     Dates: start: 19980401, end: 19980901
  12. CO-TRIMOXAZOLE [Concomitant]
     Route: 048
  13. CYTARABINE [Concomitant]
     Route: 048
     Dates: start: 19980401, end: 19980901

REACTIONS (8)
  - BACK PAIN [None]
  - BLOOD CHOLESTEROL INCREASED [None]
  - BLOOD TRIGLYCERIDES INCREASED [None]
  - OSTEONECROSIS [None]
  - OSTEOPOROSIS [None]
  - PAIN IN EXTREMITY [None]
  - SPINAL COMPRESSION FRACTURE [None]
  - SPINAL FRACTURE [None]
